FAERS Safety Report 5848523-2 (Version None)
Quarter: 2008Q3

REPORT INFORMATION
  Report Type: 
  Country: None (occurrence: None)
  Receive Date: 20080818
  Receipt Date: 20080805
  Transmission Date: 20090109
  Serious: Yes (Life-Threatening)
  Sender: FDA-Public Use
  Company Number: JP-ELI_LILLY_AND_COMPANY-JP200807000589

PATIENT
  Age: 71 Year
  Sex: Male

DRUGS (3)
  1. GEMZAR [Suspect]
     Indication: LUNG SQUAMOUS CELL CARCINOMA STAGE IV
     Dosage: UNK, UNK
     Route: 042
  2. GEMZAR [Suspect]
     Dosage: 1000 MG/M2, UNK
     Route: 042
     Dates: start: 20080101, end: 20080101
  3. VINORELBINE TARTRATE [Concomitant]
     Indication: LUNG SQUAMOUS CELL CARCINOMA STAGE IV
     Route: 042
     Dates: start: 20080101

REACTIONS (1)
  - LYMPHOMA [None]
